FAERS Safety Report 7844718 (Version 2)
Quarter: 2013Q4

REPORT INFORMATION
  Report Type: Spontaneous
  Country: US (occurrence: US)
  Receive Date: 20110307
  Receipt Date: 20131018
  Transmission Date: 20140711
  Serious: Yes (Hospitalization)
  Sender: FDA-Public Use
  Company Number: US-US-EMD SERONO, INC.-7003106

PATIENT
  Age: 55 Year
  Sex: Female
  Weight: 77 kg

DRUGS (6)
  1. REBIF [Suspect]
     Indication: MULTIPLE SCLEROSIS
     Route: 058
     Dates: start: 20060411, end: 20100408
  2. REBIF [Suspect]
     Route: 058
     Dates: start: 20100414
  3. ENABLEX [Concomitant]
     Indication: BLADDER DISORDER
  4. FEXOFENADINE [Concomitant]
     Indication: HYPERSENSITIVITY
  5. SINGULAIR [Concomitant]
     Indication: HYPERSENSITIVITY
  6. ATIVAN [Concomitant]
     Indication: ANXIETY

REACTIONS (4)
  - Appendicitis perforated [Recovered/Resolved]
  - Breast mass [Recovered/Resolved]
  - Multiple sclerosis relapse [Unknown]
  - Fatigue [Unknown]
